FAERS Safety Report 5721755-X (Version None)
Quarter: 2008Q2

REPORT INFORMATION
  Report Type: 
  Country: None (occurrence: None)
  Receive Date: 20080429
  Receipt Date: 20070409
  Transmission Date: 20081010
  Serious: No
  Sender: FDA-Public Use
  Company Number: US-ASTRAZENECA-2007UW06979

PATIENT
  Age: 65 Year
  Sex: Female
  Weight: 62.1 kg

DRUGS (3)
  1. NEXIUM [Suspect]
     Indication: STOMACH DISCOMFORT
     Route: 048
  2. NEXIUM [Suspect]
     Indication: FLATULENCE
     Route: 048
  3. NEXIUM [Suspect]
     Indication: GASTROOESOPHAGEAL REFLUX DISEASE
     Route: 048

REACTIONS (2)
  - FAECAL VOLUME DECREASED [None]
  - HEADACHE [None]
